FAERS Safety Report 11706101 (Version 1)
Quarter: 2015Q4

REPORT INFORMATION
  Report Type: Spontaneous
  Country: US (occurrence: US)
  Receive Date: 20151106
  Receipt Date: 20151106
  Transmission Date: 20160304
  Serious: Yes (Other)
  Sender: FDA-Public Use
  Company Number: US-BAYER-2015-454493

PATIENT
  Age: 60 Year
  Sex: Female
  Weight: 81.63 kg

DRUGS (1)
  1. BAYER GENUINE ASPIRIN [Suspect]
     Active Substance: ASPIRIN
     Dosage: 1 DF, PRN
     Route: 048

REACTIONS (6)
  - Epigastric discomfort [None]
  - Gastric ulcer [None]
  - Dyspepsia [None]
  - Abdominal pain upper [None]
  - Intentional product use issue [None]
  - Product use issue [None]
